FAERS Safety Report 13189457 (Version 1)
Quarter: 2017Q1

REPORT INFORMATION
  Report Type: Spontaneous
  Country: CZ (occurrence: CZ)
  Receive Date: 20170206
  Receipt Date: 20170206
  Transmission Date: 20170428
  Serious: Yes (Hospitalization, Other)
  Sender: FDA-Public Use
  Company Number: PHHY2017CZ014125

PATIENT
  Age: 32 Year
  Sex: Female

DRUGS (1)
  1. AMOKSIKLAV [Suspect]
     Active Substance: AMOXICILLIN\CLAVULANATE POTASSIUM
     Indication: LARYNGITIS
     Dosage: 1 G, BID; AFTER 12 HOURS
     Route: 048
     Dates: start: 20170111, end: 20170113

REACTIONS (2)
  - Dyspnoea [Recovered/Resolved]
  - Rash generalised [Recovered/Resolved]
